FAERS Safety Report 6125063-7 (Version None)
Quarter: 2009Q1

REPORT INFORMATION
  Report Type: 
  Country: None (occurrence: None)
  Receive Date: 20090318
  Receipt Date: 20090305
  Transmission Date: 20090719
  Serious: Yes (Hospitalization)
  Sender: FDA-Public Use
  Company Number: 234945J08USA

PATIENT
  Age: 55 Year
  Sex: Female
  Weight: 51 kg

DRUGS (12)
  1. REBIF [Suspect]
     Indication: MULTIPLE SCLEROSIS
     Dosage: 22 MCG, 3 IN 1 WEEKS, SUBCUTANEOUS
     Route: 058
     Dates: start: 20071204
  2. METOPROLOL SUCCINATE [Concomitant]
  3. LISINOPRIL [Concomitant]
  4. ASPIRIN [Concomitant]
  5. LIPITOR [Concomitant]
  6. MIRTAZAPINE [Concomitant]
  7. BUPROPION HCL [Concomitant]
  8. LEXAPRO [Concomitant]
  9. ZOLPIDEM TARTATE(ZOLPIDEM) [Concomitant]
  10. LORAZEPAM [Concomitant]
  11. PROPOXYPHENE HCL [Concomitant]
  12. ACTONEL [Concomitant]

REACTIONS (5)
  - FAECALOMA [None]
  - FALL [None]
  - FATIGUE [None]
  - INJECTION SITE ERYTHEMA [None]
  - WOUND [None]
